FAERS Safety Report 8273223-1 (Version None)
Quarter: 2012Q2

REPORT INFORMATION
  Report Type: 
  Country: None (occurrence: None)
  Receive Date: 20120411
  Receipt Date: 20120409
  Transmission Date: 20120825
  Serious: Yes (Other)
  Sender: FDA-Public Use
  Company Number: US-TEVA-313777USA

PATIENT
  Sex: Female

DRUGS (2)
  1. ORAL CONTRACEPTIVE NOS [Concomitant]
     Indication: CONTRACEPTION
     Route: 048
     Dates: start: 20110601, end: 20110101
  2. CLARAVIS [Suspect]
     Route: 048
     Dates: start: 20110827, end: 20111201

REACTIONS (1)
  - UNINTENDED PREGNANCY [None]
